FAERS Safety Report 8269200-7 (Version None)
Quarter: 2012Q2

REPORT INFORMATION
  Report Type: 
  Country: None (occurrence: None)
  Receive Date: 20120409
  Receipt Date: 20120402
  Transmission Date: 20120825
  Serious: Yes (Hospitalization)
  Sender: FDA-Public Use
  Company Number: GXKR2007US08586

PATIENT
  Age: 63 Year
  Sex: Female

DRUGS (2)
  1. VALPROIC ACID [Suspect]
     Indication: CONVULSION
     Dosage: 500 MG, QD
     Route: 065
  2. NEURONTIN [Concomitant]
     Indication: CONVULSION
     Dosage: 300 MG, TID
     Route: 065

REACTIONS (4)
  - THROMBOCYTOPENIA [None]
  - HAEMATOCRIT DECREASED [None]
  - HAEMOGLOBIN DECREASED [None]
  - MYELODYSPLASTIC SYNDROME [None]
